FAERS Safety Report 12814454 (Version 1)
Quarter: 2016Q4

REPORT INFORMATION
  Report Type: Spontaneous
  Country: US (occurrence: US)
  Receive Date: 20161005
  Receipt Date: 20161005
  Transmission Date: 20170207
  Serious: No
  Sender: FDA-Public Use
  Company Number: US-AMGEN-USASP2016051910

PATIENT
  Age: 88 Year
  Sex: Female
  Weight: 58.5 kg

DRUGS (1)
  1. PROLIA [Suspect]
     Active Substance: DENOSUMAB
     Indication: OSTEOPOROSIS
     Dosage: UNK
     Route: 065

REACTIONS (6)
  - Incorrect product storage [Unknown]
  - Hypotension [Unknown]
  - Urinary tract infection [Unknown]
  - Hypophagia [Unknown]
  - Dizziness [Unknown]
  - Dehydration [Unknown]
